FAERS Safety Report 14113991 (Version 1)
Quarter: 2017Q4

REPORT INFORMATION
  Report Type: Spontaneous
  Country: MA (occurrence: MA)
  Receive Date: 20171023
  Receipt Date: 20171023
  Transmission Date: 20180321
  Serious: Yes (Hospitalization)
  Sender: FDA-Public Use
  Company Number: MA-STRIDES ARCOLAB LIMITED-2017SP013582

PATIENT

DRUGS (2)
  1. PARACETAMOL [Suspect]
     Active Substance: ACETAMINOPHEN
     Indication: INFLUENZA LIKE ILLNESS
     Dosage: UNKNOWN
     Route: 065
  2. IBUPROFEN. [Suspect]
     Active Substance: IBUPROFEN
     Indication: INFLUENZA LIKE ILLNESS
     Dosage: UNKNOWN
     Route: 065

REACTIONS (12)
  - Conjunctival hyperaemia [Recovered/Resolved]
  - Hypokalaemia [Recovered/Resolved]
  - Macule [Recovered/Resolved]
  - Pyrexia [Recovered/Resolved]
  - Conjunctival adhesion [Recovered/Resolved]
  - Off label use [Unknown]
  - Hyponatraemia [Recovered/Resolved]
  - Toxic epidermal necrolysis [Recovered/Resolved]
  - Asthenia [Recovered/Resolved]
  - Angular cheilitis [Recovered/Resolved]
  - Oral disorder [Recovered/Resolved]
  - Rash erythematous [Recovered/Resolved]
